FAERS Safety Report 13535191 (Version 1)
Quarter: 2017Q2

REPORT INFORMATION
  Report Type: Spontaneous
  Country: US (occurrence: US)
  Receive Date: 20170510
  Receipt Date: 20170510
  Transmission Date: 20170830
  Serious: No
  Sender: FDA-Public Use
  Company Number: None

PATIENT
  Age: 7 Year
  Sex: Female

DRUGS (5)
  1. MONTELUKAST [Suspect]
     Active Substance: MONTELUKAST SODIUM
     Indication: MULTIPLE ALLERGIES
     Dosage: AT BEDTIME ORAL
     Route: 048
     Dates: start: 20170411, end: 20170509
  2. MONTELUKAST [Suspect]
     Active Substance: MONTELUKAST SODIUM
     Indication: RESPIRATORY DISORDER
     Dosage: AT BEDTIME ORAL
     Route: 048
     Dates: start: 20170411, end: 20170509
  3. ALBUTEROL INHALER [Concomitant]
     Active Substance: ALBUTEROL
  4. LORATADINE. [Concomitant]
     Active Substance: LORATADINE
  5. FLONASE [Concomitant]
     Active Substance: FLUTICASONE PROPIONATE

REACTIONS (11)
  - Abnormal behaviour [None]
  - Insomnia [None]
  - Aggression [None]
  - Anger [None]
  - Anhedonia [None]
  - Screaming [None]
  - Speech disorder [None]
  - Irritability [None]
  - Condition aggravated [None]
  - Depressed mood [None]
  - Memory impairment [None]

NARRATIVE: CASE EVENT DATE: 20170509
